FAERS Safety Report 8543314-6 (Version None)
Quarter: 2012Q2

REPORT INFORMATION
  Report Type: 
  Country: None (occurrence: None)
  Receive Date: 20120412
  Receipt Date: 20090924
  Transmission Date: 20120825
  Serious: Yes (Other)
  Sender: FDA-Public Use
  Company Number: PHEH2006US04720

PATIENT
  Sex: Male

DRUGS (5)
  1. CLARITIN-D [Concomitant]
  2. ZOMETA [Suspect]
  3. AREDIA [Suspect]
  4. WARFARIN SODIUM [Concomitant]
  5. ALEVE /00256202/ (NAPROXEN SODIUM) [Concomitant]

REACTIONS (5)
  - INJURY [None]
  - OSTEONECROSIS [None]
  - SCROTAL CYST [None]
  - EMOTIONAL DISTRESS [None]
  - PAIN [None]
